FAERS Safety Report 7523869-0 (Version None)
Quarter: 2011Q2

REPORT INFORMATION
  Report Type: 
  Country: None (occurrence: None)
  Receive Date: 20110603
  Receipt Date: 20110523
  Transmission Date: 20111010
  Serious: Yes (Hospitalization)
  Sender: FDA-Public Use
  Company Number: BE-GENENTECH-312244

PATIENT
  Sex: Male
  Weight: 66 kg

DRUGS (18)
  1. RITUXIMAB [Suspect]
     Dosage: 700 MG, UNK
     Route: 042
     Dates: start: 20110203
  2. VINCRISTINE [Suspect]
     Dosage: 2 MG, UNK
     Route: 042
     Dates: start: 20110303
  3. DOXORUBICIN HCL [Suspect]
     Dosage: UNK
     Route: 042
     Dates: start: 20110303
  4. VINCRISTINE [Suspect]
     Indication: DIFFUSE LARGE B-CELL LYMPHOMA
     Dosage: 2 MG, UNK
     Route: 042
     Dates: start: 20101230
  5. DOXORUBICIN HCL [Suspect]
     Indication: DIFFUSE LARGE B-CELL LYMPHOMA
     Dosage: 89.5 MG, UNK
     Route: 042
     Dates: start: 20101230
  6. PREDNISONE [Suspect]
     Dosage: UNK
     Route: 048
     Dates: start: 20110303
  7. CYCLOPHOSPHAMIDE [Suspect]
     Indication: DIFFUSE LARGE B-CELL LYMPHOMA
     Dosage: 1343 MG, UNK
     Route: 042
     Dates: start: 20101230
  8. DOXORUBICIN HCL [Suspect]
     Dosage: 89 MG, UNK
     Route: 042
     Dates: start: 20110203
  9. VINCRISTINE [Suspect]
     Dosage: 2 MG, UNK
     Route: 042
     Dates: start: 20110203
  10. CYCLOPHOSPHAMIDE [Suspect]
     Dosage: 1313 MG, UNK
     Route: 042
     Dates: start: 20110203
  11. RITUXIMAB [Suspect]
     Indication: DIFFUSE LARGE B-CELL LYMPHOMA
     Dosage: 672 MG, UNK
     Route: 042
     Dates: start: 20101230
  12. RITUXIMAB [Suspect]
     Dosage: UNK
     Route: 042
     Dates: start: 20110303
  13. PREDNISONE [Suspect]
     Dosage: 100 MG, UNK
     Route: 048
     Dates: start: 20110203
  14. NEUPOGEN [Suspect]
     Indication: DIFFUSE LARGE B-CELL LYMPHOMA
     Dosage: 6 MG, UNK
     Route: 058
     Dates: start: 20101231
  15. NEUPOGEN [Suspect]
     Dosage: 6 MG, UNK
     Route: 058
     Dates: start: 20110207
  16. NEUPOGEN [Suspect]
     Dosage: UNK
     Route: 058
     Dates: start: 20110304
  17. PREDNISONE [Suspect]
     Indication: DIFFUSE LARGE B-CELL LYMPHOMA
     Dosage: L
     Route: 048
     Dates: start: 20101230
  18. CYCLOPHOSPHAMIDE [Suspect]
     Dosage: UNK
     Route: 042
     Dates: start: 20110303

REACTIONS (3)
  - PULMONARY EMBOLISM [None]
  - FEBRILE NEUTROPENIA [None]
  - PNEUMONIA [None]
